FAERS Safety Report 5219136-0 (Version None)
Quarter: 2007Q1

REPORT INFORMATION
  Report Type: 
  Country: None (occurrence: None)
  Receive Date: 20070124
  Receipt Date: 20070124
  Transmission Date: 20070707
  Serious: Yes (Hospitalization)
  Sender: FDA-Public Use
  Company Number: None

PATIENT
  Age: 60 Year
  Sex: Male
  Weight: 80.7403 kg

DRUGS (8)
  1. REGLAN [Suspect]
     Indication: GASTROINTESTINAL MOTILITY DISORDER
     Dosage: PO, 5 MG TID
     Route: 048
     Dates: start: 20060908, end: 20061025
  2. REGLAN [Suspect]
     Indication: NAUSEA
     Dosage: PO, 5 MG TID
     Route: 048
     Dates: start: 20060908, end: 20061025
  3. REGLAN [Suspect]
     Indication: VOMITING
     Dosage: PO, 5 MG TID
     Route: 048
     Dates: start: 20060908, end: 20061025
  4. METOPROLOL TARTRATE [Concomitant]
  5. REGLAN HCL [Concomitant]
  6. LEVALBUTEROL HCL [Concomitant]
  7. OMEPRAZOLE [Concomitant]
  8. HUMAN INSULIN [Concomitant]

REACTIONS (1)
  - MYOCLONUS [None]
